FAERS Safety Report 10419109 (Version 1)
Quarter: 2014Q2

REPORT INFORMATION
  Report Type: Spontaneous
  Country: US (occurrence: None)
  Receive Date: 20140625
  Receipt Date: 20140625
  Transmission Date: 20141212
  Serious: No
  Sender: FDA-Public Use
  Company Number: A-NJ2014-97500

PATIENT
  Age: 68 Year
  Sex: Female

DRUGS (3)
  1. OPSUMIT (MACITENTAN) TABLET [Suspect]
     Indication: PULMONARY ARTERIAL HYPERTENSION
     Route: 048
     Dates: start: 20140322
  2. ADCIRCA (TADALAFIL) [Suspect]
     Dates: start: 20140314
  3. COUMADIN (WARFARIN SODIUM) [Concomitant]

REACTIONS (6)
  - Epistaxis [None]
  - Nasal congestion [None]
  - Abdominal distension [None]
  - Fluid retention [None]
  - Hypotension [None]
  - Dyspnoea [None]
